FAERS Safety Report 8708023 (Version 2)
Quarter: 2012Q4

REPORT INFORMATION
  Report Type: 
  Country: JP (occurrence: JP)
  Receive Date: 20120806
  Receipt Date: 20121130
  Transmission Date: 20130627
  Serious: Yes (Hospitalization, Other)
  Sender: FDA-Public Use
  Company Number: JP-SHIRE-SPV1-2010-00368

PATIENT
  Age: 64 Year
  Sex: Male

DRUGS (17)
  1. 405 (LANTHANUM CARBONATE) [Suspect]
     Indication: HYPERPHOSPHATAEMIA
     Dosage: 750 mg, Other (immediately after meals)
     Route: 048
     Dates: start: 20090612, end: 20100425
  2. 405 (LANTHANUM CARBONATE) [Suspect]
     Dosage: 1500 mg, Unknown
     Route: 048
     Dates: start: 20100426
  3. CALTAN [Concomitant]
     Indication: HYPERPHOSPHATAEMIA
     Dosage: 3000 mg, Unknown
     Route: 048
     Dates: start: 20090807
  4. ROCALTROL [Concomitant]
     Indication: PRODUCT USED FOR UNKNOWN INDICATION
     Dosage: 0.25 ?g, Unknown
     Route: 048
     Dates: end: 20090914
  5. OXAROL [Concomitant]
     Indication: PRODUCT USED FOR UNKNOWN INDICATION
     Dosage: 10 mcg, 1x/week
     Route: 042
     Dates: start: 20090914, end: 20091025
  6. OXAROL [Concomitant]
     Dosage: 15 mcg, 1x/week
     Route: 042
     Dates: start: 20091026, end: 20100228
  7. OXAROL [Concomitant]
     Dosage: 15 mcg, 1x/week
     Route: 042
     Dates: start: 20100301, end: 20100312
  8. OXAROL [Concomitant]
     Dosage: 15 mcg, 1x/week
     Route: 042
     Dates: start: 20100315, end: 20100331
  9. OXAROL [Concomitant]
     Dosage: 15 mcg, 1x/week
     Route: 042
     Dates: start: 20100401
  10. OXAROL [Concomitant]
     Dosage: 12.5 mcg, 1x/week
     Route: 042
     Dates: start: 20100717, end: 20100808
  11. OXAROL [Concomitant]
     Dosage: 10 mcg, 1x/week
     Route: 042
     Dates: start: 20100809, end: 20110131
  12. OXAROL [Concomitant]
     Dosage: 7.5 mcg, 1x/week
     Route: 042
     Dates: start: 20110201, end: 20110531
  13. OXAROL [Concomitant]
     Dosage: 5 mcg, 1x/week
     Route: 042
     Dates: start: 20110601, end: 20120131
  14. OXAROL [Concomitant]
     Dosage: 7.5 ?g, 1x/week
     Route: 042
     Dates: start: 20120201
  15. BAYASPIRIN [Concomitant]
     Indication: PROPHYLAXIS
     Dosage: 100 mg, Unknown
     Route: 048
  16. AMLODIPINE [Concomitant]
     Indication: PRODUCT USED FOR UNKNOWN INDICATION
     Dosage: 5 mg, Unknown
     Route: 048
  17. EPOGIN [Concomitant]
     Indication: PRODUCT USED FOR UNKNOWN INDICATION
     Dosage: 7500 IU, Unknown
     Route: 042

REACTIONS (5)
  - Gastric ulcer [Recovering/Resolving]
  - Shunt malfunction [Recovering/Resolving]
  - Large intestinal ulcer [Recovered/Resolved]
  - Angina pectoris [Recovering/Resolving]
  - Arthralgia [Unknown]
